FAERS Safety Report 15208735 (Version 4)
Quarter: 2019Q3

REPORT INFORMATION
  Report Type: Spontaneous
  Country: DE (occurrence: DE)
  Receive Date: 20180727
  Receipt Date: 20190715
  Transmission Date: 20191004
  Serious: Yes (Hospitalization, Other)
  Sender: FDA-Public Use
  Company Number: DE-SA-2018SA202925

PATIENT
  Age: 42 Year
  Sex: Female
  Weight: 85 kg

DRUGS (5)
  1. LEMTRADA [Suspect]
     Active Substance: ALEMTUZUMAB
     Dosage: 12 UNK
     Route: 041
     Dates: start: 20180219, end: 20180221
  2. MIRTAZAPIN [Concomitant]
     Active Substance: MIRTAZAPINE
     Indication: DEPRESSION
     Dosage: 15 MG
     Route: 048
     Dates: start: 2015
  3. LEMTRADA [Suspect]
     Active Substance: ALEMTUZUMAB
     Indication: MULTIPLE SCLEROSIS
     Dosage: 12 MG
     Route: 041
     Dates: start: 20170213, end: 20170217
  4. VITAMIN D [COLECALCIFEROL] [Concomitant]
     Active Substance: CHOLECALCIFEROL
     Indication: VITAMIN D DEFICIENCY
     Dosage: 2000 IU
     Route: 048
     Dates: start: 2015
  5. VITAMIN D [COLECALCIFEROL] [Concomitant]
     Active Substance: CHOLECALCIFEROL
     Indication: PROPHYLAXIS

REACTIONS (5)
  - Vitiligo [Not Recovered/Not Resolved]
  - Meningioma [Unknown]
  - Herpes virus infection [Unknown]
  - Paraesthesia [Unknown]
  - Vibratory sense increased [Unknown]

NARRATIVE: CASE EVENT DATE: 201703
